FAERS Safety Report 9746605 (Version 3)
Quarter: 2014Q2

REPORT INFORMATION
  Report Type: Spontaneous
  Country: US (occurrence: US)
  Receive Date: 20131211
  Receipt Date: 20140417
  Transmission Date: 20141212
  Serious: Yes (Other)
  Sender: FDA-Public Use
  Company Number: US-PFIZER INC-2013353824

PATIENT
  Age: 40 Year
  Sex: Male

DRUGS (4)
  1. DILANTIN [Suspect]
     Indication: EPILEPSY
     Dosage: UNK
     Dates: start: 1995
  2. DILANTIN [Suspect]
     Dosage: 330 MG, UNK
     Dates: start: 2013
  3. DILANTIN [Suspect]
     Dosage: 200 MG, UNK
  4. KEPPRA [Suspect]
     Indication: EPILEPSY
     Dosage: 1500 MG, UNK
     Dates: start: 2013

REACTIONS (7)
  - Loss of consciousness [Unknown]
  - Tongue biting [Unknown]
  - Foaming at mouth [Unknown]
  - Osteopenia [Unknown]
  - Anxiety [Unknown]
  - Nervousness [Unknown]
  - Panic attack [Unknown]
